FAERS Safety Report 15210635 (Version 2)
Quarter: 2018Q3

REPORT INFORMATION
  Report Type: Report from Study
  Country: CA (occurrence: CA)
  Receive Date: 20180728
  Receipt Date: 20180803
  Transmission Date: 20181010
  Serious: Yes (Life-Threatening, Hospitalization)
  Sender: FDA-Public Use
  Company Number: CA-HLSUS-2018-CA-001114

PATIENT
  Age: 45 Year
  Sex: Male

DRUGS (3)
  1. CLOZARIL [Suspect]
     Active Substance: CLOZAPINE
     Indication: SCHIZOPHRENIA
     Dosage: 125MG
     Route: 048
     Dates: start: 20180625
  2. PALIPERIDONE. [Concomitant]
     Active Substance: PALIPERIDONE
     Indication: SCHIZOPHRENIA
     Dosage: 150MG Q 4 WEEKS
     Route: 030
  3. BUPROPION. [Concomitant]
     Active Substance: BUPROPION
     Dosage: 300MG Q AM
     Route: 048

REACTIONS (5)
  - Myocarditis [Unknown]
  - Sedation [Unknown]
  - Troponin increased [Unknown]
  - Myositis [Recovered/Resolved]
  - C-reactive protein increased [Unknown]

NARRATIVE: CASE EVENT DATE: 20180718
